FAERS Safety Report 7178746-4 (Version None)
Quarter: 2010Q4

REPORT INFORMATION
  Report Type: 
  Country: None (occurrence: None)
  Receive Date: 20101209
  Receipt Date: 20101126
  Transmission Date: 20110411
  Serious: Yes (Other)
  Sender: FDA-Public Use
  Company Number: CL-274-2010

PATIENT
  Sex: Female

DRUGS (4)
  1. FLUCONAZOLE [Suspect]
     Indication: CANDIDIASIS
     Dosage: 150MG IN TOTAL
  2. CLOTRIMAZOLE [Suspect]
     Indication: CANDIDIASIS
     Dosage: ONCE/DAY
  3. ETHINYLESTRADIOL (CILEST) [Suspect]
     Indication: CONTRACEPTION
  4. NORGESTIMATE (CILEST) [Suspect]
     Indication: CONTRACEPTION

REACTIONS (1)
  - METRORRHAGIA [None]
